FAERS Safety Report 7946216-9 (Version None)
Quarter: 2011Q4

REPORT INFORMATION
  Report Type: 
  Country: None (occurrence: None)
  Receive Date: 20111123
  Receipt Date: 20111111
  Transmission Date: 20120403
  Serious: Yes (Congenital Anomaly, Other)
  Sender: FDA-Public Use
  Company Number: 2010179857

PATIENT
  Sex: Female
  Weight: 2.8 kg

DRUGS (2)
  1. FRAGMIN [Suspect]
     Indication: ABORTION SPONTANEOUS
     Dosage: 5000 IU, 1X/DAY, TRANSPLACENTAL
     Route: 064
     Dates: start: 20101217
  2. FRAGMIN [Suspect]
     Indication: INTRA-UTERINE DEATH
     Dosage: 5000 IU, 1X/DAY, TRANSPLACENTAL
     Route: 064
     Dates: start: 20101217

REACTIONS (2)
  - FOETAL CYSTIC HYGROMA [None]
  - MATERNAL DRUGS AFFECTING FOETUS [None]
